FAERS Safety Report 16169221 (Version 1)
Quarter: 2019Q2

REPORT INFORMATION
  Report Type: Spontaneous
  Country: SE (occurrence: SE)
  Receive Date: 20190408
  Receipt Date: 20190408
  Transmission Date: 20190711
  Serious: Yes (Death, Hospitalization)
  Sender: FDA-Public Use
  Company Number: SE-SA-A01200204103

PATIENT
  Age: 61 Year
  Sex: Female

DRUGS (5)
  1. ISOVORIN [CALCIUM FOLINATE] [Concomitant]
     Dosage: UNK
  2. ELOXATIN [Suspect]
     Active Substance: OXALIPLATIN
     Indication: PRODUCT USED FOR UNKNOWN INDICATION
     Dosage: 135 MG/M2, QCY
     Route: 042
     Dates: start: 20020108, end: 20020108
  3. BETAMETHASONE SODIUM PHOSPHATE [Suspect]
     Active Substance: BETAMETHASONE SODIUM PHOSPHATE
     Indication: PROPHYLAXIS
     Dosage: 8 MG, QD
     Route: 042
     Dates: start: 20020108, end: 20020108
  4. EPIRUBICIN;FLUOROURACIL;MITOMYCIN [Concomitant]
     Dosage: UNK
  5. ONDANSETRON HYDROCHLORIDE. [Suspect]
     Active Substance: ONDANSETRON HYDROCHLORIDE
     Indication: PROPHYLAXIS
     Dosage: 8 MG,OTHER
     Route: 042
     Dates: start: 20020108, end: 20020108

REACTIONS (4)
  - Pulmonary embolism [Fatal]
  - Back pain [Unknown]
  - Erythema [Unknown]
  - Diarrhoea [Fatal]

NARRATIVE: CASE EVENT DATE: 20020108
